FAERS Safety Report 10917470 (Version 1)
Quarter: 2015Q1

REPORT INFORMATION
  Report Type: Spontaneous
  Country: GB (occurrence: GB)
  Receive Date: 20150316
  Receipt Date: 20150316
  Transmission Date: 20150721
  Serious: Yes (Other)
  Sender: FDA-Public Use
  Company Number: GB-CIPLA LTD.-2015GB01934

PATIENT

DRUGS (13)
  1. RAMIPRIL. [Suspect]
     Active Substance: RAMIPRIL
     Indication: CARDIAC FAILURE
     Dosage: 1.25 MG
     Route: 048
     Dates: start: 20150205, end: 20150218
  2. RAMIPRIL. [Suspect]
     Active Substance: RAMIPRIL
     Dosage: 5MG
     Route: 048
     Dates: start: 20150205, end: 20150218
  3. AMITRIPTYLINE [Concomitant]
     Active Substance: AMITRIPTYLINE
  4. ATORVASTAN [Concomitant]
  5. DOXAZOSIN [Concomitant]
     Active Substance: DOXAZOSIN\DOXAZOSIN MESYLATE
  6. FUROSEMIDE. [Concomitant]
     Active Substance: FUROSEMIDE
  7. ALLOPURINOL. [Concomitant]
     Active Substance: ALLOPURINOL
  8. RAMIPRIL. [Suspect]
     Active Substance: RAMIPRIL
     Dosage: 2.5MG
     Route: 048
  9. DIGOXIN. [Suspect]
     Active Substance: DIGOXIN
     Indication: ATRIAL FIBRILLATION
     Dosage: 187.5 UNK
     Route: 048
     Dates: start: 20150202, end: 20150217
  10. DIGOXIN. [Suspect]
     Active Substance: DIGOXIN
     Dosage: 125 UNK
     Route: 048
     Dates: start: 20150202, end: 20150217
  11. GLICLAZIDE [Concomitant]
     Active Substance: GLICLAZIDE
  12. LEVOTHYROXINE [Concomitant]
     Active Substance: LEVOTHYROXINE
  13. CARVEDILOL. [Concomitant]
     Active Substance: CARVEDILOL

REACTIONS (2)
  - Bradycardia [Recovered/Resolved]
  - Renal impairment [Recovered/Resolved]

NARRATIVE: CASE EVENT DATE: 20150217
